FAERS Safety Report 15979160 (Version 1)
Quarter: 2019Q1

REPORT INFORMATION
  Report Type: Spontaneous
  Country: US (occurrence: US)
  Receive Date: 20190215
  Receipt Date: 20190215
  Transmission Date: 20190418
  Serious: No
  Sender: FDA-Public Use
  Company Number: None

PATIENT

DRUGS (1)
  1. ACTDOSE HYDROCODONE BITARTRATE AND ACETAMINOPHEN ORAL SOLUTION CUPS [Suspect]
     Active Substance: ACETAMINOPHEN\HYDROCODONE BITARTRATE
     Indication: PAIN

REACTIONS (1)
  - Product barcode issue [None]

NARRATIVE: CASE EVENT DATE: 20190215
